FAERS Safety Report 6909312-0 (Version None)
Quarter: 2010Q3

REPORT INFORMATION
  Report Type: 
  Country: None (occurrence: None)
  Receive Date: 20100805
  Receipt Date: 20100727
  Transmission Date: 20110219
  Serious: Yes (Hospitalization)
  Sender: FDA-Public Use
  Company Number: PHHY2010JP07605

PATIENT
  Age: 56 Year
  Sex: Female
  Weight: 46 kg

DRUGS (9)
  1. NEORAL [Suspect]
     Indication: BONE MARROW TRANSPLANT
     Dosage: 120 MG/DAY
  2. METHOTREXATE [Suspect]
     Indication: BONE MARROW TRANSPLANT
  3. METHYLPREDNISOLONE [Suspect]
     Indication: BONE MARROW TRANSPLANT
     Dosage: 20 MG/DAY
     Dates: end: 20080601
  4. METHYLPREDNISOLONE [Suspect]
     Dosage: 17.5 MG/DAY
     Dates: start: 20080601
  5. PREDNISOLONE [Suspect]
     Indication: BONE MARROW TRANSPLANT
     Dosage: 20MG/DAY
  6. LEVOFLOXACIN [Concomitant]
     Indication: INFECTION PROPHYLAXIS
  7. FLUCONAZOLE [Concomitant]
     Indication: INFECTION PROPHYLAXIS
     Dosage: UNK
  8. SULFAMETHOXAZOLE AND TRIMETHOPRIM [Concomitant]
     Indication: INFECTION PROPHYLAXIS
  9. STEROIDS NOS [Concomitant]

REACTIONS (12)
  - BACK PAIN [None]
  - BONE LESION [None]
  - DYSPNOEA [None]
  - GAIT DISTURBANCE [None]
  - GRAFT VERSUS HOST DISEASE IN LUNG [None]
  - HYPOXIA [None]
  - INFECTIVE SPONDYLITIS [None]
  - INFLAMMATION [None]
  - OEDEMA [None]
  - PAIN IN EXTREMITY [None]
  - PYREXIA [None]
  - SEPSIS [None]
